FAERS Safety Report 25880703 (Version 1)
Quarter: 2025Q4

REPORT INFORMATION
  Report Type: Report from Study
  Country: EG (occurrence: EG)
  Receive Date: 20251004
  Receipt Date: 20251004
  Transmission Date: 20260118
  Serious: Yes (Other)
  Sender: NOVARTIS
  Company Number: EG-002147023-NVSC2025EG153789

PATIENT
  Sex: Male
  Weight: 116 kg

DRUGS (8)
  1. XOLAIR [Suspect]
     Active Substance: OMALIZUMAB
     Indication: Asthma
     Dosage: 150 MG, OTHER (3 INJECTIONS EVERY 14 DAYS)
     Route: 058
     Dates: start: 20221115
  2. XOLAIR [Suspect]
     Active Substance: OMALIZUMAB
     Dosage: 150 MG, OTHER, 4 INJECTIONS EVERY 14 DAYS
     Route: 058
     Dates: start: 202408, end: 20250810
  3. XOLAIR [Suspect]
     Active Substance: OMALIZUMAB
     Dosage: 150 MG, OTHER (4 INJECTIONS EVERY 14 DAYS)
     Route: 058
     Dates: start: 20250810
  4. HYDROCHLOROTHIAZIDE\VALSARTAN [Suspect]
     Active Substance: HYDROCHLOROTHIAZIDE\VALSARTAN
     Indication: Hypertension
     Dosage: 80 MG, AS NEEDED (STARTED 5-6 YEARS AGO)
     Route: 048
  5. MELATONIN [Concomitant]
     Active Substance: MELATONIN
     Indication: Insomnia
     Dosage: UNK, PRN
     Route: 048
  6. AMISULPRIDE [Concomitant]
     Active Substance: AMISULPRIDE
     Indication: Depression
     Dosage: 50 MG, QD
     Route: 048
     Dates: start: 2022
  7. Mirtimash [Concomitant]
     Indication: Depression
     Dosage: UNK, QD, TABLET
     Route: 048
     Dates: start: 2025
  8. CRESTOR [Concomitant]
     Active Substance: ROSUVASTATIN CALCIUM
     Indication: Hypercholesterolaemia
     Dosage: UNK, QD, TABLET (STARTED 5 YEARS AGO
     Route: 048

REACTIONS (10)
  - Weight increased [Recovered/Resolved]
  - Hypoglycaemic coma [Recovered/Resolved]
  - Dizziness [Recovered/Resolved]
  - Blood prolactin increased [Recovered/Resolved]
  - Laziness [Recovered/Resolved]
  - Sexual dysfunction [Recovered/Resolved]
  - Gynaecomastia [Recovered/Resolved]
  - Hypotension [Unknown]
  - Weight decreased [Not Recovered/Not Resolved]
  - Product dose omission issue [Not Recovered/Not Resolved]

NARRATIVE: CASE EVENT DATE: 20250101
